FAERS Safety Report 13773200 (Version 2)
Quarter: 2017Q3

REPORT INFORMATION
  Report Type: Spontaneous
  Country: JP (occurrence: JP)
  Receive Date: 20170720
  Receipt Date: 20170727
  Transmission Date: 20171127
  Serious: Yes (Other)
  Sender: FDA-Public Use
  Company Number: JP-PFIZER INC-2017298652

PATIENT
  Age: 40 Year
  Sex: Female

DRUGS (1)
  1. EPIPEN [Suspect]
     Active Substance: EPINEPHRINE
     Dosage: UNK

REACTIONS (4)
  - Heart rate increased [Unknown]
  - Palpitations [Unknown]
  - Accidental exposure to product [Unknown]
  - Blood pressure increased [Unknown]
